FAERS Safety Report 5052344-0 (Version None)
Quarter: 2006Q2

REPORT INFORMATION
  Report Type: 
  Country: None (occurrence: None)
  Receive Date: 20060614
  Receipt Date: 20060227
  Transmission Date: 20061013
  Serious: Yes (Other)
  Sender: FDA-Public Use
  Company Number: 438492

PATIENT
  Sex: Female

DRUGS (2)
  1. BONIVA [Suspect]
     Indication: DRUG USE FOR UNKNOWN INDICATION
  2. IMITREX [Concomitant]

REACTIONS (4)
  - MYALGIA [None]
  - NAUSEA [None]
  - PAIN [None]
  - VOMITING [None]
